FAERS Safety Report 8556759 (Version 14)
Quarter: 2014Q1

REPORT INFORMATION
  Report Type: Spontaneous
  Country: DE (occurrence: DE)
  Receive Date: 20120511
  Receipt Date: 20140324
  Transmission Date: 20141002
  Serious: Yes (Hospitalization)
  Sender: FDA-Public Use
  Company Number: DE-BIOGENIDEC-2012BI015395

PATIENT
  Age: 30 Year
  Sex: Male
  Weight: 70 kg

DRUGS (5)
  1. TYSABRI [Suspect]
     Indication: RELAPSING-REMITTING MULTIPLE SCLEROSIS
     Route: 042
     Dates: start: 200609, end: 20120316
  2. FLUOXETINE [Concomitant]
     Indication: DEPRESSION
     Dates: end: 201202
  3. FLUOXETINE [Concomitant]
     Indication: DEPRESSION
     Dates: start: 201202
  4. OPIPRAMOL [Concomitant]
     Indication: DEPRESSION
     Dates: end: 201202
  5. OPIPRAMOL [Concomitant]
     Indication: DEPRESSION
     Dates: start: 201202

REACTIONS (3)
  - Progressive multifocal leukoencephalopathy [Not Recovered/Not Resolved]
  - Immune reconstitution inflammatory syndrome [Unknown]
  - Infection [Unknown]
